FAERS Safety Report 12836678 (Version 1)
Quarter: 2016Q4

REPORT INFORMATION
  Report Type: Spontaneous
  Country: KR (occurrence: KR)
  Receive Date: 20161011
  Receipt Date: 20161011
  Transmission Date: 20170207
  Serious: Yes (Other)
  Sender: FDA-Public Use
  Company Number: KR-ELI_LILLY_AND_COMPANY-KR201610001880

PATIENT
  Age: 66 Year
  Sex: Female

DRUGS (2)
  1. GEMCITABINE HYDROCHLORIDE. [Suspect]
     Active Substance: GEMCITABINE HYDROCHLORIDE
     Indication: PANCREATIC CARCINOMA METASTATIC
     Dosage: UNK, UNKNOWN
     Route: 065
  2. ERLOTINIB [Suspect]
     Active Substance: ERLOTINIB
     Indication: PANCREATIC CARCINOMA METASTATIC
     Dosage: 100 MG, QD
     Route: 048

REACTIONS (4)
  - Pneumatosis intestinalis [Recovered/Resolved]
  - Blood alkaline phosphatase increased [Unknown]
  - Malignant neoplasm progression [Unknown]
  - Gamma-glutamyltransferase increased [Unknown]
